FAERS Safety Report 25178192 (Version 1)
Quarter: 2025Q2

REPORT INFORMATION
  Report Type: Spontaneous
  Country: CN (occurrence: CN)
  Receive Date: 20250409
  Receipt Date: 20250409
  Transmission Date: 20250717
  Serious: Yes (Hospitalization)
  Sender: Atnahs Healthcare
  Company Number: CN-ATNAHS-ATNAHS20250402838

PATIENT
  Age: 26 Year
  Sex: Male

DRUGS (1)
  1. IBANDRONIC ACID [Suspect]
     Active Substance: IBANDRONIC ACID
     Indication: Adverse drug reaction

REACTIONS (2)
  - Pneumonitis chemical [Recovered/Resolved]
  - Occupational exposure to product [Recovered/Resolved]
